FAERS Safety Report 17713672 (Version 1)
Quarter: 2020Q2

REPORT INFORMATION
  Report Type: Spontaneous
  Country: US (occurrence: US)
  Receive Date: 20200427
  Receipt Date: 20200427
  Transmission Date: 20200714
  Serious: No
  Sender: FDA-Public Use
  Company Number: None

PATIENT
  Age: 24 Year
  Sex: Female
  Weight: 62 kg

DRUGS (1)
  1. RITUXAN [Suspect]
     Active Substance: RITUXIMAB
     Indication: NEUROMYELITIS OPTICA SPECTRUM DISORDER
     Dosage: ?          OTHER FREQUENCY:EVERY 2 WEEKS;?
     Route: 042
     Dates: start: 20200427

REACTIONS (6)
  - Dry throat [None]
  - Infusion related reaction [None]
  - Dyspnoea [None]
  - Documented hypersensitivity to administered product [None]
  - Chest discomfort [None]
  - Throat tightness [None]

NARRATIVE: CASE EVENT DATE: 20200424
